FAERS Safety Report 8968525 (Version 1)
Quarter: 2012Q4

REPORT INFORMATION
  Report Type: Report from Study
  Country: US (occurrence: US)
  Receive Date: 20121218
  Receipt Date: 20121218
  Transmission Date: 20130627
  Serious: Yes (Other)
  Sender: FDA-Public Use
  Company Number: US-ABBOTT-12P-163-1020859-00

PATIENT
  Age: 50 Year
  Sex: Male

DRUGS (8)
  1. HUMIRA [Suspect]
     Indication: PSORIATIC ARTHROPATHY
     Dates: start: 201008
  2. LEVOXYL [Concomitant]
     Indication: HYPOTHYROIDISM
     Dosage: Daily
  3. COLCRYS [Concomitant]
     Indication: GOUT
  4. METFORMIN [Concomitant]
     Indication: TYPE 2 DIABETES MELLITUS
  5. PRAVASTATIN [Concomitant]
     Indication: CARDIAC DISORDER
     Dosage: Daily
  6. FOLIC ACID [Concomitant]
     Indication: PRODUCT USED FOR UNKNOWN INDICATION
     Dosage: Daily
  7. LISINOPRIL [Concomitant]
     Indication: RENAL DISORDER
     Dosage: Daily
  8. LISINOPRIL [Concomitant]
     Indication: PROPHYLAXIS

REACTIONS (1)
  - Nephrolithiasis [Unknown]
